FAERS Safety Report 7454985-X (Version None)
Quarter: 2011Q2

REPORT INFORMATION
  Report Type: 
  Country: None (occurrence: None)
  Receive Date: 20110503
  Receipt Date: 20110426
  Transmission Date: 20111010
  Serious: Yes (Hospitalization)
  Sender: FDA-Public Use
  Company Number: US-NOVOPROD-327161

PATIENT
  Sex: Female
  Weight: 83.447 kg

DRUGS (3)
  1. VICTOZA [Suspect]
     Dosage: 1.2 MG, QD
     Dates: start: 20110201
  2. VICTOZA [Suspect]
     Indication: TYPE 2 DIABETES MELLITUS
     Dosage: 0.6 MG, QD
     Route: 058
     Dates: start: 20110201
  3. VICTOZA [Suspect]
     Dosage: ALTERNATED DAILY BETWEEN 0.6 MG AND 1.2 MG DAILY
     Route: 058
     Dates: start: 20110401

REACTIONS (4)
  - VOMITING [None]
  - NAUSEA [None]
  - INJECTION SITE HAEMATOMA [None]
  - THROMBOCYTOPENIA [None]
